FAERS Safety Report 6425060-8 (Version None)
Quarter: 2009Q4

REPORT INFORMATION
  Report Type: 
  Country: None (occurrence: None)
  Receive Date: 20091103
  Receipt Date: 20091023
  Transmission Date: 20100525
  Serious: Yes (Other)
  Sender: FDA-Public Use
  Company Number: CA-ROCHE-664183

PATIENT
  Age: 16 Year
  Sex: Female

DRUGS (8)
  1. ACCUTANE [Suspect]
     Indication: DRUG USE FOR UNKNOWN INDICATION
     Route: 048
  2. ACCUTANE [Suspect]
     Dosage: FOR ONE MONTH
     Route: 048
  3. ACCUTANE [Suspect]
     Dosage: FOR ONE MONTH
     Route: 048
  4. ACCUTANE [Suspect]
     Dosage: FOR 2 MONTHS
     Route: 048
  5. DIANE-35 [Suspect]
     Indication: DRUG USE FOR UNKNOWN INDICATION
     Route: 065
  6. MINOCYCLINE [Suspect]
     Indication: DRUG USE FOR UNKNOWN INDICATION
     Route: 065
  7. SPIRONOLACTONE [Suspect]
     Indication: DRUG USE FOR UNKNOWN INDICATION
     Route: 065
  8. LIPITOR [Concomitant]

REACTIONS (8)
  - ACNE CYSTIC [None]
  - ALANINE AMINOTRANSFERASE INCREASED [None]
  - ASPARTATE AMINOTRANSFERASE INCREASED [None]
  - BLOOD CHOLESTEROL INCREASED [None]
  - CHEILITIS [None]
  - GAMMA-GLUTAMYLTRANSFERASE INCREASED [None]
  - HYPERTRIGLYCERIDAEMIA [None]
  - XEROSIS [None]
